FAERS Safety Report 5744993-9 (Version None)
Quarter: 2008Q2

REPORT INFORMATION
  Report Type: 
  Country: None (occurrence: None)
  Receive Date: 20080521
  Receipt Date: 20080512
  Transmission Date: 20081010
  Serious: Yes (Other)
  Sender: FDA-Public Use
  Company Number: US-JNJFOC-20080102567

PATIENT
  Sex: Female
  Weight: 63.5 kg

DRUGS (5)
  1. REMICADE [Suspect]
     Indication: VASCULITIS
     Dosage: 4 MG/KG
     Route: 042
  2. FOSAMAX [Suspect]
     Indication: DRUG USE FOR UNKNOWN INDICATION
  3. METHOTREXATE [Concomitant]
  4. STEROIDS [Concomitant]
  5. IMMUNE GLOBULIN INTRAVENOUS (HUMAN) [Concomitant]

REACTIONS (4)
  - ARTHRALGIA [None]
  - INTESTINAL FUNCTIONAL DISORDER [None]
  - NEUROPATHY PERIPHERAL [None]
  - VASCULITIS [None]
